FAERS Safety Report 5792603-7 (Version None)
Quarter: 2008Q2

REPORT INFORMATION
  Report Type: 
  Country: None (occurrence: None)
  Receive Date: 20080626
  Receipt Date: 20080614
  Transmission Date: 20081010
  Serious: Yes (Other)
  Sender: FDA-Public Use
  Company Number: US-PFIZER INC-2008051040

PATIENT
  Sex: Male
  Weight: 190.5 kg

DRUGS (7)
  1. CHANTIX [Suspect]
     Indication: SMOKING CESSATION THERAPY
  2. WELLBUTRIN [Concomitant]
  3. PREVACID [Concomitant]
  4. PROVIGIL [Concomitant]
  5. FUROSEMIDE [Concomitant]
  6. LEVOTHYROXINE SODIUM [Concomitant]
  7. LISINOPRIL [Concomitant]

REACTIONS (1)
  - WEIGHT DECREASED [None]
